FAERS Safety Report 11133518 (Version 1)
Quarter: 2015Q2

REPORT INFORMATION
  Report Type: Spontaneous
  Country: GB (occurrence: GB)
  Receive Date: 20150523
  Receipt Date: 20150523
  Transmission Date: 20150821
  Serious: Yes (Disabling, Other)
  Sender: FDA-Public Use
  Company Number: GB-ACCORD-030765

PATIENT
  Age: 65 Year
  Sex: Female
  Weight: 68.03 kg

DRUGS (3)
  1. PARACETAMOL [Concomitant]
     Active Substance: ACETAMINOPHEN
  2. LEVOTHYROXINE [Concomitant]
     Active Substance: LEVOTHYROXINE
  3. SERTRALINE [Suspect]
     Active Substance: SERTRALINE HYDROCHLORIDE
     Indication: PAIN
     Route: 048
     Dates: start: 20140820, end: 20140823

REACTIONS (3)
  - Speech disorder [Recovered/Resolved with Sequelae]
  - Off label use [Unknown]
  - Tremor [Recovered/Resolved]

NARRATIVE: CASE EVENT DATE: 20140821
